APPROVED DRUG PRODUCT: PHENYLEPHRINE HYDROCHLORIDE
Active Ingredient: PHENYLEPHRINE HYDROCHLORIDE
Strength: 2.5%
Dosage Form/Route: SOLUTION/DROPS;OPHTHALMIC
Application: A216859 | Product #001 | TE Code: AT
Applicant: MANKIND PHARMA LTD
Approved: Sep 29, 2022 | RLD: No | RS: Yes | Type: RX